FAERS Safety Report 13882549 (Version 1)
Quarter: 2017Q3

REPORT INFORMATION
  Report Type: Spontaneous
  Country: KR (occurrence: KR)
  Receive Date: 20170818
  Receipt Date: 20170818
  Transmission Date: 20171127
  Serious: Yes (Other)
  Sender: FDA-Public Use
  Company Number: KR-SUN PHARMACEUTICAL INDUSTRIES LTD-2017RR-147651

PATIENT
  Age: 32 Year
  Sex: Female

DRUGS (4)
  1. IFOSFAMIDE. [Suspect]
     Active Substance: IFOSFAMIDE
     Indication: CALCIFICATION METASTATIC
     Dosage: 3 CYCLES
     Route: 065
  2. DOXORUBICIN [Suspect]
     Active Substance: DOXORUBICIN
     Indication: CALCIFICATION METASTATIC
     Dosage: 3 CYCLES
     Route: 065
  3. CALCIUM [Suspect]
     Active Substance: CALCIUM
     Indication: HYPOCALCAEMIA
     Dosage: HIGH DOSES
     Route: 065
  4. VITAMIN D [Suspect]
     Active Substance: CHOLECALCIFEROL
     Indication: HYPOCALCAEMIA
     Dosage: HIGH DOSES
     Route: 065

REACTIONS (3)
  - Hypercalcaemia [Unknown]
  - Drug ineffective [Unknown]
  - Respiratory failure [Unknown]
